FAERS Safety Report 7916136 (Version 6)
Quarter: 2012Q4

REPORT INFORMATION
  Report Type: 
  Country: US (occurrence: US)
  Receive Date: 20110427
  Receipt Date: 20120920
  Transmission Date: 20130627
  Serious: No
  Sender: FDA-Public Use
  Company Number: US-PFIZER INC-2011089062

PATIENT
  Age: 56 Year
  Sex: Female
  Weight: 63.49 kg

DRUGS (11)
  1. PRISTIQ [Suspect]
     Indication: MAJOR DEPRESSION
     Dosage: 50 mg, 1x/day
     Route: 048
     Dates: start: 20100501
  2. PRISTIQ [Interacting]
     Indication: DEPRESSION
     Dosage: UNK
  3. ZOLOFT [Suspect]
     Indication: DEPRESSION
     Dosage: UNK
     Route: 048
  4. ALPRAZOLAM [Suspect]
  5. LEXAPRO [Suspect]
     Indication: DEPRESSION
     Dosage: UNK
  6. RESTORIL [Suspect]
     Indication: SLEEP DISORDER
     Dosage: UNK
  7. SUBOXONE [Suspect]
  8. PRILOSEC [Concomitant]
     Indication: GASTROOESOPHAGEAL REFLUX DISEASE
     Dosage: 20 (units unspecified), QD
  9. VALIUM [Concomitant]
     Indication: TREMOR
     Dosage: 10 mg, 3x/day
  10. TRAZODONE [Concomitant]
     Dosage: 50 mg, HS (at bedtime)
  11. XANAX [Concomitant]
     Indication: ANXIETY
     Dosage: UNK

REACTIONS (12)
  - Drug ineffective [Unknown]
  - Malaise [Unknown]
  - Gastrooesophageal reflux disease [Unknown]
  - Energy increased [Not Recovered/Not Resolved]
  - Insomnia [Not Recovered/Not Resolved]
  - Fatigue [Not Recovered/Not Resolved]
  - Somnolence [Not Recovered/Not Resolved]
  - Choking sensation [Unknown]
  - Abdominal pain upper [Unknown]
  - Flatulence [Unknown]
  - Anxiety [Unknown]
  - Drug interaction [Unknown]
